FAERS Safety Report 8889234 (Version 1)
Quarter: 2012Q4

REPORT INFORMATION
  Report Type: 
  Country: US (occurrence: US)
  Receive Date: 20121106
  Receipt Date: 20121106
  Transmission Date: 20130627
  Serious: Yes (Hospitalization)
  Sender: FDA-Public Use
  Company Number: US-GLAXOSMITHKLINE-A0982387A

PATIENT
  Age: 59 Year
  Sex: Female

DRUGS (18)
  1. BENLYSTA [Suspect]
     Indication: SYSTEMIC LUPUS ERYTHEMATOSUS
     Dosage: 10MGK Unknown
     Route: 042
     Dates: start: 20120518
  2. ENDOCET [Concomitant]
     Dosage: 2TAB As required
  3. ASPIRIN [Concomitant]
     Indication: ANTIPHOSPHOLIPID SYNDROME
     Dosage: 81MG Per day
  4. LASIX [Concomitant]
     Dosage: 80MG Per day
  5. TOPAMAX [Concomitant]
     Dosage: 100MG At night
  6. PREMPRO [Concomitant]
     Dosage: 1TAB Alternate days
  7. NEURONTIN [Concomitant]
  8. COLACE [Concomitant]
  9. AMBIEN [Concomitant]
     Dosage: 10MG At night
  10. POTASSIUM [Concomitant]
     Dosage: 40MEQ Per day
  11. CYMBALTA [Concomitant]
     Indication: FIBROMYALGIA
  12. PREDNISONE [Concomitant]
  13. CELLCEPT [Concomitant]
     Dosage: 500MG Twice per day
  14. NAPROXEN [Concomitant]
     Dosage: 220MG Twice per day
  15. VITAMIN D [Concomitant]
     Dosage: 2000IU Per day
  16. FOLIC ACID [Concomitant]
  17. ZOFRAN [Concomitant]
  18. PHENERGAN [Concomitant]

REACTIONS (7)
  - Suicidal ideation [Recovered/Resolved]
  - Non-cardiac chest pain [Unknown]
  - Bradycardia [Unknown]
  - Depressed mood [Unknown]
  - Gastritis [Unknown]
  - Vomiting [Unknown]
  - Nausea [Unknown]
